FAERS Safety Report 9210464 (Version 1)
Quarter: 2013Q2

REPORT INFORMATION
  Report Type: Spontaneous
  Country: US (occurrence: US)
  Receive Date: 20130404
  Receipt Date: 20130404
  Transmission Date: 20140414
  Serious: No
  Sender: FDA-Public Use
  Company Number: US-BAYER-2013-042575

PATIENT
  Age: 41 Year
  Sex: Female
  Weight: 64.4 kg

DRUGS (5)
  1. BETASERON [Suspect]
     Dosage: 0.25 MG, QOD
     Route: 058
  2. XANAX [Concomitant]
     Dosage: 0.25 MG, UNK
     Route: 048
  3. METOPROLOL [Concomitant]
     Dosage: 25 MG, UNK
     Route: 048
  4. ZANTAC 75 DISSOLVE [Concomitant]
     Dosage: UNK
     Route: 048
  5. TYLENOL [PARACETAMOL] [Concomitant]
     Dosage: 325 MG, UNK
     Route: 048

REACTIONS (2)
  - Influenza like illness [Unknown]
  - Chills [Unknown]
